FAERS Safety Report 8095377 (Version 2)
Quarter: 2014Q1

REPORT INFORMATION
  Report Type: Spontaneous
  Country: US (occurrence: None)
  Receive Date: 20110711
  Receipt Date: 20140219
  Transmission Date: 20141002
  Serious: Yes (Other)
  Sender: FDA-Public Use
  Company Number: IPC201105-001511

PATIENT
  Sex: 0

DRUGS (2)
  1. METOCLOPRAMIDE HYDROCHLORIDE [Suspect]
     Dates: start: 199907, end: 200910
  2. REGLAN [Suspect]
     Dates: start: 199907, end: 200910

REACTIONS (3)
  - Extrapyramidal disorder [None]
  - Parkinsonism [None]
  - Tremor [None]
